FAERS Safety Report 4678464-8 (Version None)
Quarter: 2005Q2

REPORT INFORMATION
  Report Type: 
  Country: None (occurrence: None)
  Receive Date: 20050531
  Receipt Date: 20050531
  Transmission Date: 20051028
  Serious: No
  Sender: FDA-Public Use
  Company Number: None

PATIENT

DRUGS (2)
  1. LIDOCAINE 1% INJ [Suspect]
     Indication: COLONOSCOPY
     Dosage: 0.05 - 0.1ML
  2. LIDOCAINE 1% INJ [Suspect]
     Indication: PAIN
     Dosage: 0.05 - 0.1ML

REACTIONS (2)
  - BRADYCARDIA [None]
  - HYPOTENSION [None]
